FAERS Safety Report 10770536 (Version 3)
Quarter: 2015Q1

REPORT INFORMATION
  Report Type: Spontaneous
  Country: US (occurrence: None)
  Receive Date: 20150206
  Receipt Date: 20150206
  Transmission Date: 20150721
  Serious: Yes (Hospitalization)
  Sender: FDA-Public Use
  Company Number: HYP201304-000002

PATIENT
  Age: 4 Year
  Sex: Female
  Weight: 20 kg

DRUGS (3)
  1. RAVICTI [Suspect]
     Active Substance: GLYCEROL PHENYLBUTYRATE
     Indication: UREA CYCLE ENZYME DEFICIENCY
     Route: 048
     Dates: start: 20130327, end: 20130418
  2. PROPHREE [Concomitant]
  3. PEPTAMEN JUNIOR [Concomitant]
     Active Substance: DIETARY SUPPLEMENT

REACTIONS (2)
  - Hyperammonaemic crisis [None]
  - Vomiting [None]

NARRATIVE: CASE EVENT DATE: 20130418
